FAERS Safety Report 8992076 (Version 1)
Quarter: 2012Q4

REPORT INFORMATION
  Report Type: 
  Country: US (occurrence: US)
  Receive Date: 20121231
  Receipt Date: 20121231
  Transmission Date: 20130627
  Serious: Yes (Other)
  Sender: FDA-Public Use
  Company Number: CHPA2012US025468

PATIENT
  Age: 77 Year
  Sex: Female

DRUGS (6)
  1. TRANSDERM SCOP [Suspect]
     Indication: MOTION SICKNESS
     Dosage: Unk, Unk
     Route: 062
     Dates: start: 20121203, end: 20121213
  2. SYNTHROID [Concomitant]
     Route: 048
  3. NEXIUM 1-2-3 [Concomitant]
     Route: 048
  4. DRUG THERAPY NOS [Concomitant]
     Indication: BLOOD PRESSURE MANAGEMENT
  5. WELLBUTRIN [Concomitant]
     Route: 048
  6. ZETIA [Concomitant]

REACTIONS (6)
  - Trismus [Not Recovered/Not Resolved]
  - Ear pain [Not Recovered/Not Resolved]
  - Gingival pain [Not Recovered/Not Resolved]
  - Oral pain [Not Recovered/Not Resolved]
  - Pain in jaw [Not Recovered/Not Resolved]
  - Dry mouth [Not Recovered/Not Resolved]
